FAERS Safety Report 18689850 (Version 1)
Quarter: 2020Q4

REPORT INFORMATION
  Report Type: Spontaneous
  Country: US (occurrence: US)
  Receive Date: 20201231
  Receipt Date: 20201231
  Transmission Date: 20210114
  Serious: Yes (Hospitalization, Other)
  Sender: FDA-Public Use
  Company Number: US-009507513-2012USA013551

PATIENT
  Age: 64 Year
  Sex: Female
  Weight: 75.3 kg

DRUGS (6)
  1. AMLODIPINE [Concomitant]
     Active Substance: AMLODIPINE BESYLATE
     Indication: BLOOD PRESSURE INCREASED
  2. LENVATINIB MESYLATE [Suspect]
     Active Substance: LENVATINIB MESYLATE
     Indication: ENDOMETRIAL CANCER
     Dosage: 10 MG ONCE DAILY
     Route: 048
     Dates: start: 20201127
  3. MAGNESIUM (UNSPECIFIED) [Concomitant]
     Active Substance: MAGNESIUM
  4. SODIUM CHLORIDE. [Concomitant]
     Active Substance: SODIUM CHLORIDE
  5. KEYTRUDA [Suspect]
     Active Substance: PEMBROLIZUMAB
  6. HYDROCHLOROTHIAZIDE. [Concomitant]
     Active Substance: HYDROCHLOROTHIAZIDE
     Indication: BLOOD PRESSURE INCREASED
     Dosage: UNK
     Dates: end: 20201210

REACTIONS (15)
  - Hypomagnesaemia [Recovered/Resolved]
  - Blood glucose increased [Unknown]
  - Acute kidney injury [Recovered/Resolved]
  - Dehydration [Unknown]
  - Malignant neoplasm progression [Unknown]
  - Hyponatraemia [Recovered/Resolved]
  - Alanine aminotransferase increased [Unknown]
  - Red blood cell count decreased [Unknown]
  - Hyperkalaemia [Recovered/Resolved]
  - Leukocytosis [Recovering/Resolving]
  - Neutrophil count increased [Unknown]
  - Blood albumin decreased [Unknown]
  - Limb discomfort [Unknown]
  - Blood alkaline phosphatase increased [Unknown]
  - Aspartate aminotransferase increased [Unknown]

NARRATIVE: CASE EVENT DATE: 20201104
